FAERS Safety Report 13012997 (Version 2)
Quarter: 2016Q4

REPORT INFORMATION
  Report Type: Spontaneous
  Country: DE (occurrence: DE)
  Receive Date: 20161209
  Receipt Date: 20161209
  Transmission Date: 20170207
  Serious: Yes (Disabling)
  Sender: FDA-Public Use
  Company Number: DE-TEVA-716004GER

PATIENT
  Age: 68 Year
  Sex: Male

DRUGS (1)
  1. TERBINAFIN [Suspect]
     Active Substance: TERBINAFINE
     Indication: ONYCHOMYCOSIS
     Dates: start: 201601, end: 201608

REACTIONS (1)
  - Vitreous opacities [Not Recovered/Not Resolved]

NARRATIVE: CASE EVENT DATE: 20161021
